FAERS Safety Report 25078670 (Version 2)
Quarter: 2025Q3

REPORT INFORMATION
  Report Type: Spontaneous
  Country: US (occurrence: US)
  Receive Date: 20250314
  Receipt Date: 20250810
  Transmission Date: 20251021
  Serious: No
  Sender: ALEXION PHARMACEUTICALS
  Company Number: US-AstraZeneca-CH-00825242A

PATIENT
  Age: 48 Year
  Sex: Female
  Weight: 117.93 kg

DRUGS (1)
  1. FASENRA [Suspect]
     Active Substance: BENRALIZUMAB
     Indication: Idiopathic pulmonary fibrosis
     Dosage: 30 MILLIGRAM, Q8W
     Dates: start: 20230828

REACTIONS (1)
  - Influenza [Not Recovered/Not Resolved]

NARRATIVE: CASE EVENT DATE: 20250301
